FAERS Safety Report 17197767 (Version 7)
Quarter: 2023Q2

REPORT INFORMATION
  Report Type: Spontaneous
  Country: PT (occurrence: PT)
  Receive Date: 20191224
  Receipt Date: 20230622
  Transmission Date: 20230722
  Serious: Yes (Life-Threatening, Hospitalization, Other)
  Sender: FDA-Public Use
  Company Number: PT-MYLANLABS-2019M1130053

PATIENT
  Age: 43 Year
  Sex: Male

DRUGS (4)
  1. CLOZAPINE [Interacting]
     Active Substance: CLOZAPINE
     Indication: Schizophrenia
     Dosage: UNK
     Route: 065
  2. OLANZAPINE [Interacting]
     Active Substance: OLANZAPINE
     Indication: Schizophrenia
     Dosage: UNK
     Route: 065
  3. ESCITALOPRAM [Suspect]
     Active Substance: ESCITALOPRAM OXALATE
     Indication: Schizophrenia
     Dosage: UNK
     Route: 065
  4. BIPERIDEN [Interacting]
     Active Substance: BIPERIDEN
     Indication: Schizophrenia
     Dosage: UNK
     Route: 065

REACTIONS (5)
  - Shock [Unknown]
  - Colitis ischaemic [Recovered/Resolved]
  - Depressed level of consciousness [Unknown]
  - Abdominal pain [Unknown]
  - Drug interaction [Unknown]
